FAERS Safety Report 9920827 (Version 2)
Quarter: 2015Q4

REPORT INFORMATION
  Report Type: Report from Study
  Country: US (occurrence: US)
  Receive Date: 20140224
  Receipt Date: 20151208
  Transmission Date: 20160305
  Serious: Yes (Hospitalization, Other)
  Sender: FDA-Public Use
  Company Number: US-ROCHE-1353468

PATIENT
  Sex: Female

DRUGS (3)
  1. VIGAMOX [Concomitant]
     Active Substance: MOXIFLOXACIN HYDROCHLORIDE
     Route: 047
  2. LUCENTIS [Suspect]
     Active Substance: RANIBIZUMAB
     Indication: NEOVASCULAR AGE-RELATED MACULAR DEGENERATION
     Dosage: OD
     Route: 042
  3. AVASTIN [Suspect]
     Active Substance: BEVACIZUMAB
     Indication: NEOVASCULAR AGE-RELATED MACULAR DEGENERATION
     Route: 050

REACTIONS (9)
  - Macular fibrosis [Unknown]
  - Macular oedema [Unknown]
  - Eye haemorrhage [Unknown]
  - Dry eye [Unknown]
  - Retinal scar [Unknown]
  - Retinal haemorrhage [Unknown]
  - Macular pigmentation [Unknown]
  - Urinary tract infection [Unknown]
  - Product use issue [Unknown]
